FAERS Safety Report 6102078-6 (Version None)
Quarter: 2009Q1

REPORT INFORMATION
  Report Type: 
  Country: None (occurrence: None)
  Receive Date: 20090304
  Receipt Date: 20090220
  Transmission Date: 20090719
  Serious: Yes (Hospitalization)
  Sender: FDA-Public Use
  Company Number: FR-PFIZER INC-2009174492

PATIENT

DRUGS (12)
  1. ALDACTONE [Suspect]
     Indication: HYPERTENSION
     Dosage: 25 MG, 1X/DAY
     Route: 048
     Dates: end: 20081104
  2. LYRICA [Suspect]
     Indication: PAIN
     Route: 048
     Dates: end: 20081104
  3. TROSPIUM CHLORIDE [Suspect]
     Indication: URGE INCONTINENCE
     Route: 048
     Dates: end: 20081104
  4. STABLON [Suspect]
     Indication: DEPRESSION
     Route: 048
     Dates: end: 20081104
  5. TRIATEC [Suspect]
     Indication: HYPERTENSION
     Route: 048
     Dates: end: 20081104
  6. OXYCONTIN [Suspect]
     Indication: PAIN
     Route: 048
     Dates: end: 20081104
  7. COUMADIN [Suspect]
     Dosage: UNK
     Route: 048
     Dates: end: 20080101
  8. LEVOTHYROX [Concomitant]
     Dosage: UNK
     Route: 048
  9. NEXIUM [Concomitant]
     Dosage: 20 MG, 1X/DAY
     Route: 048
     Dates: end: 20081104
  10. LASIX [Concomitant]
     Indication: OEDEMA PERIPHERAL
     Dosage: 40 MEQ/L, 1X/DAY
     Route: 048
     Dates: end: 20081104
  11. CARDENSIEL [Concomitant]
     Indication: HYPERTENSION
     Dosage: 1.25 MG, 1X/DAY
     Route: 048
  12. CORTANCYL [Concomitant]
     Indication: B-CELL LYMPHOMA
     Route: 048

REACTIONS (2)
  - CHOLESTASIS [None]
  - CYTOLYTIC HEPATITIS [None]
